FAERS Safety Report 17619674 (Version 2)
Quarter: 2020Q2

REPORT INFORMATION
  Report Type: Spontaneous
  Country: PL (occurrence: PL)
  Receive Date: 20200403
  Receipt Date: 20200416
  Transmission Date: 20200713
  Serious: Yes (Hospitalization)
  Sender: FDA-Public Use
  Company Number: PL-BIOGEN-2020BI00858964

PATIENT
  Age: 42 Year
  Sex: Female
  Weight: 70.1 kg

DRUGS (5)
  1. ALOE VERA [Concomitant]
     Active Substance: ALOE VERA LEAF
     Indication: SUPPLEMENTATION THERAPY
     Route: 065
     Dates: start: 2014
  2. VITAMIN C [Concomitant]
     Active Substance: ASCORBIC ACID
     Indication: SUPPLEMENTATION THERAPY
     Route: 065
     Dates: start: 2014
  3. TYSABRI [Suspect]
     Active Substance: NATALIZUMAB
     Indication: MULTIPLE SCLEROSIS
     Route: 042
     Dates: start: 20180618
  4. TYSABRI [Suspect]
     Active Substance: NATALIZUMAB
     Route: 042
     Dates: start: 20190701
  5. NUVARING [Concomitant]
     Active Substance: ETHINYL ESTRADIOL\ETONOGESTREL
     Indication: CONTRACEPTION
     Route: 065
     Dates: start: 2014

REACTIONS (1)
  - Ligament rupture [Recovered/Resolved with Sequelae]

NARRATIVE: CASE EVENT DATE: 20200303
